FAERS Safety Report 14672314 (Version 1)
Quarter: 2018Q1

REPORT INFORMATION
  Report Type: Spontaneous
  Country: US (occurrence: US)
  Receive Date: 20180323
  Receipt Date: 20180323
  Transmission Date: 20180509
  Serious: No
  Sender: FDA-Public Use
  Company Number: US-JNJFOC-20180304094

PATIENT
  Age: 84 Year
  Sex: Male
  Weight: 78.02 kg

DRUGS (5)
  1. TYLENOL 8 HR ARTHRITIS PAIN [Suspect]
     Active Substance: ACETAMINOPHEN
     Route: 048
  2. CYMBALTA [Concomitant]
     Active Substance: DULOXETINE HYDROCHLORIDE
     Indication: DIABETIC NEUROPATHY
     Route: 065
  3. TYLENOL 8 HR ARTHRITIS PAIN [Suspect]
     Active Substance: ACETAMINOPHEN
     Indication: DIABETIC NEUROPATHY
     Dosage: 2 CAPLETS 3XDAYS 8 HOURS APART  ABOUT 3 MONTHS AGO
     Route: 048
  4. LISINOPRIL. [Concomitant]
     Active Substance: LISINOPRIL
     Indication: HYPERTENSION
     Route: 065
  5. SIMVASTATIN. [Concomitant]
     Active Substance: SIMVASTATIN
     Indication: BLOOD CHOLESTEROL
     Route: 065

REACTIONS (1)
  - Product use in unapproved indication [Unknown]
